FAERS Safety Report 6922753-0 (Version None)
Quarter: 2010Q3

REPORT INFORMATION
  Report Type: 
  Country: None (occurrence: None)
  Receive Date: 20100811
  Receipt Date: 20100802
  Transmission Date: 20110219
  Serious: Yes (Other)
  Sender: FDA-Public Use
  Company Number: 2010GW000616

PATIENT
  Age: 73 Year
  Sex: Male

DRUGS (2)
  1. MINITRAN [Suspect]
     Indication: PRODUCT USED FOR UNKNOWN INDICATION
     Dosage: 0.2 MG; ; TDER
     Route: 062
  2. DIGOXIN [Concomitant]

REACTIONS (1)
  - CORONARY ARTERY BYPASS [None]
